FAERS Safety Report 24882052 (Version 3)
Quarter: 2025Q3

REPORT INFORMATION
  Report Type: Report from Study
  Country: GB (occurrence: GB)
  Receive Date: 20250124
  Receipt Date: 20250903
  Transmission Date: 20251021
  Serious: Yes (Other)
  Sender: NOVARTIS
  Company Number: GB-002147023-NVSC2025GB011547

PATIENT
  Sex: Female

DRUGS (2)
  1. COSENTYX [Suspect]
     Active Substance: SECUKINUMAB
     Indication: Psoriatic arthropathy
     Route: 065
     Dates: end: 202012
  2. COSENTYX [Suspect]
     Active Substance: SECUKINUMAB
     Route: 065
     Dates: start: 20240326

REACTIONS (5)
  - Bell^s palsy [Unknown]
  - Tonsillitis [Unknown]
  - Psoriasis [Unknown]
  - Arthralgia [Unknown]
  - Pain in jaw [Not Recovered/Not Resolved]
